FAERS Safety Report 10612871 (Version 4)
Quarter: 2015Q1

REPORT INFORMATION
  Report Type: Report from Study
  Country: SE (occurrence: SE)
  Receive Date: 20141127
  Receipt Date: 20150101
  Transmission Date: 20150720
  Serious: Yes (Death, Hospitalization)
  Sender: FDA-Public Use
  Company Number: SE-B.I. PHARMACEUTICALS,INC./RIDGEFIELD-2014-BI-53005SW

PATIENT
  Age: 61 Year
  Sex: Female
  Weight: 72 kg

DRUGS (2)
  1. MORTIN [Concomitant]
     Indication: TUMOUR PAIN
     Dosage: DOSE PER APPLICATION: 10-20 MG
     Route: 048
     Dates: start: 20140612
  2. BIBF 1120 [Suspect]
     Active Substance: NINTEDANIB
     Indication: NON-SMALL CELL LUNG CANCER
     Dosage: 400 MG
     Route: 048
     Dates: start: 20140915

REACTIONS (13)
  - Malignant neoplasm progression [Fatal]
  - General physical health deterioration [Recovered/Resolved]
  - Anxiety [Unknown]
  - Pain in extremity [Unknown]
  - Anxiety [Recovered/Resolved]
  - Constipation [Recovered/Resolved]
  - Tumour pain [Recovered/Resolved]
  - Fatigue [Unknown]
  - Extrapyramidal disorder [Unknown]
  - Tumour pain [Unknown]
  - Vomiting [Recovered/Resolved]
  - Decreased appetite [Recovered/Resolved]
  - Diarrhoea [Recovered/Resolved]

NARRATIVE: CASE EVENT DATE: 20140917
